FAERS Safety Report 4602817-7 (Version None)
Quarter: 2005Q1

REPORT INFORMATION
  Report Type: 
  Country: None (occurrence: None)
  Receive Date: 20050307
  Receipt Date: 20050221
  Transmission Date: 20050727
  Serious: Yes (Hospitalization)
  Sender: FDA-Public Use
  Company Number: 2005034404

PATIENT
  Age: 55 Year
  Sex: Female
  Weight: 87 kg

DRUGS (3)
  1. EPIRUBICIN [Suspect]
     Indication: BREAST CANCER
     Dosage: 180 MG (CYCLIC)
     Dates: start: 20050110
  2. FLUOROURACIL [Suspect]
     Indication: BREAST CANCER
     Dosage: 900 MG (CYCLIC),
     Dates: start: 20050110
  3. CYCLOPHOSPHAMIDE [Concomitant]
     Indication: BREAST CANCER
     Dosage: 900 MG (CYCLIC)
     Dates: start: 20050110

REACTIONS (2)
  - ASTHENIA [None]
  - NEUTROPENIA [None]
